FAERS Safety Report 19353051 (Version 1)
Quarter: 2021Q2

REPORT INFORMATION
  Report Type: Report from Study
  Country: DE (occurrence: DE)
  Receive Date: 20210531
  Receipt Date: 20210531
  Transmission Date: 20210717
  Serious: Yes (Hospitalization, Other)
  Sender: FDA-Public Use
  Company Number: DE-SA-2019SA066930

PATIENT
  Age: 32 Year
  Sex: Male
  Weight: 78 kg

DRUGS (5)
  1. MAVENCLAD [Concomitant]
     Active Substance: CLADRIBINE
     Dosage: 10 MG
     Dates: start: 20201006, end: 20201010
  2. ALEMTUZUMAB [Suspect]
     Active Substance: ALEMTUZUMAB
     Indication: MULTIPLE SCLEROSIS
     Dosage: 12 MG
     Route: 041
     Dates: start: 20170911, end: 20170915
  3. ALEMTUZUMAB [Suspect]
     Active Substance: ALEMTUZUMAB
     Dosage: 12 MG, QD
     Route: 041
     Dates: start: 20190325, end: 20190327
  4. MAVENCLAD [Concomitant]
     Active Substance: CLADRIBINE
     Indication: RELAPSING-REMITTING MULTIPLE SCLEROSIS
     Dosage: 10MG
     Dates: start: 20200630, end: 20200704
  5. ALEMTUZUMAB [Suspect]
     Active Substance: ALEMTUZUMAB
     Dosage: 12 MG
     Route: 041
     Dates: start: 20180915, end: 20180917

REACTIONS (3)
  - Basedow^s disease [Not Recovered/Not Resolved]
  - Skin burning sensation [Recovered/Resolved]
  - Endocrine ophthalmopathy [Recovering/Resolving]

NARRATIVE: CASE EVENT DATE: 20181015
